FAERS Safety Report 9705234 (Version 2)
Quarter: 2014Q1

REPORT INFORMATION
  Report Type: Spontaneous
  Country: US (occurrence: US)
  Receive Date: 20131122
  Receipt Date: 20140212
  Transmission Date: 20141002
  Serious: Yes (Other)
  Sender: FDA-Public Use
  Company Number: US-BAYER-2013-143506

PATIENT
  Age: 31 Year
  Sex: Female
  Weight: 105 kg

DRUGS (1)
  1. MIRENA [Suspect]
     Indication: CONTRACEPTION
     Dosage: DAILY DOSE 20 ?G
     Dates: start: 20131009, end: 20131018

REACTIONS (4)
  - Streptococcal infection [None]
  - Psoriasis [Recovering/Resolving]
  - Device allergy [None]
  - Rash maculo-papular [Recovering/Resolving]
